FAERS Safety Report 4421444-8 (Version None)
Quarter: 2004Q3

REPORT INFORMATION
  Report Type: 
  Country: None (occurrence: None)
  Receive Date: 20040709
  Receipt Date: 20040504
  Transmission Date: 20050211
  Serious: No
  Sender: FDA-Public Use
  Company Number: 2004S1000103

PATIENT
  Age: 75 Year
  Sex: Female

DRUGS (2)
  1. CUBICIN [Suspect]
     Indication: IMPLANT SITE INFECTION
     Dosage: 260 MG; Q24H; IV
     Route: 042
     Dates: end: 20040406
  2. CUBICIN [Suspect]
     Indication: STAPHYLOCOCCAL INFECTION
     Dosage: 260 MG; Q24H; IV
     Route: 042
     Dates: end: 20040406

REACTIONS (1)
  - THROMBOCYTOPENIA [None]
